FAERS Safety Report 9432540 (Version 1)
Quarter: 2013Q3

REPORT INFORMATION
  Report Type: Spontaneous
  Country: US (occurrence: None)
  Receive Date: 20130730
  Receipt Date: 20130730
  Transmission Date: 20140515
  Serious: No
  Sender: FDA-Public Use
  Company Number: None

PATIENT
  Age: 0 Day
  Sex: Female
  Weight: 90.72 kg

DRUGS (1)
  1. YASMIN [Suspect]
     Dosage: QEQ 1 DAILY  MU...
     Route: 048

REACTIONS (1)
  - Acne [None]
